FAERS Safety Report 20901399 (Version 1)
Quarter: 2022Q2

REPORT INFORMATION
  Report Type: Report from Study
  Country: CO (occurrence: CO)
  Receive Date: 20220601
  Receipt Date: 20220601
  Transmission Date: 20220720
  Serious: Yes (Other)
  Sender: FDA-Public Use
  Company Number: CO-ABBVIE-22K-036-4414577-00

PATIENT
  Age: 50 Year
  Sex: Female
  Weight: 52 kg

DRUGS (3)
  1. HUMIRA [Suspect]
     Active Substance: ADALIMUMAB
     Indication: Ankylosing spondylitis
     Route: 058
     Dates: end: 20220320
  2. ADALIMUMAB [Suspect]
     Active Substance: ADALIMUMAB
     Indication: Ankylosing spondylitis
     Route: 065
  3. HUMIRA [Suspect]
     Active Substance: ADALIMUMAB
     Indication: Product used for unknown indication
     Route: 058
     Dates: start: 20160805

REACTIONS (11)
  - Choking [Recovered/Resolved]
  - Throat clearing [Recovered/Resolved]
  - Foreign body in throat [Recovered/Resolved]
  - Aphonia [Recovered/Resolved]
  - Sneezing [Recovered/Resolved]
  - Productive cough [Recovered/Resolved]
  - Nasal congestion [Recovered/Resolved]
  - Influenza [Recovered/Resolved]
  - Hypersensitivity [Recovered/Resolved]
  - Rhinitis [Recovered/Resolved]
  - Urticaria [Recovered/Resolved]

NARRATIVE: CASE EVENT DATE: 20220501
